FAERS Safety Report 5445729-1 (Version None)
Quarter: 2007Q3

REPORT INFORMATION
  Report Type: 
  Country: None (occurrence: None)
  Receive Date: 20070904
  Receipt Date: 20070823
  Transmission Date: 20080115
  Serious: Yes (Death)
  Sender: FDA-Public Use
  Company Number: 07H-163-0313119-00

PATIENT
  Age: 62 Year
  Sex: Male
  Weight: 74 kg

DRUGS (2)
  1. VANCOMYCIN HYDROCHLORIDE [Suspect]
     Indication: STAPHYLOCOCCAL INFECTION
     Dosage: 1.2 GM, 18 HR, INTRAVENOUS; 1.2 GM, 12 HR, INTRAVENOUS
     Route: 042
  2. TOBRAMYCIN [Concomitant]

REACTIONS (1)
  - NEPHROPATHY TOXIC [None]
